FAERS Safety Report 25898795 (Version 2)
Quarter: 2025Q4

REPORT INFORMATION
  Report Type: Spontaneous
  Country: TZ (occurrence: TZ)
  Receive Date: 20251009
  Receipt Date: 20251009
  Transmission Date: 20260119
  Serious: Yes (Death, Life-Threatening, Hospitalization, Other)
  Sender: STRIDES
  Company Number: TZ-STRIDES ARCOLAB LIMITED-2025SP012476

PATIENT
  Age: 30 Year
  Sex: Female

DRUGS (4)
  1. ALBENDAZOLE [Suspect]
     Active Substance: ALBENDAZOLE
     Indication: Pulmonary echinococciasis
     Dosage: UNK
  2. MISOPROSTOL [Concomitant]
     Active Substance: MISOPROSTOL
     Indication: Vaginal haemorrhage
     Dosage: UNK
     Route: 065
  3. OXYTOCIN [Concomitant]
     Active Substance: OXYTOCIN
     Indication: Vaginal haemorrhage
     Dosage: UNK
     Route: 065
  4. TRANEXAMIC ACID [Concomitant]
     Active Substance: TRANEXAMIC ACID
     Indication: Vaginal haemorrhage
     Dosage: UNK
     Route: 065

REACTIONS (3)
  - Drug ineffective [Fatal]
  - Respiratory disorder [Fatal]
  - Pulmonary echinococciasis [Fatal]
